FAERS Safety Report 20056236 (Version 3)
Quarter: 2022Q1

REPORT INFORMATION
  Report Type: Report from Study
  Country: US (occurrence: US)
  Receive Date: 20211111
  Receipt Date: 20220113
  Transmission Date: 20220423
  Serious: No
  Sender: FDA-Public Use
  Company Number: US-CELGENE-USA-20211101049

PATIENT
  Age: 44 Year
  Sex: Male

DRUGS (1)
  1. ZEPOSIA [Suspect]
     Active Substance: OZANIMOD HYDROCHLORIDE
     Indication: Colitis ulcerative
     Dosage: 0.23-0.92 MILLIGRAM
     Route: 048
     Dates: start: 20211027

REACTIONS (8)
  - Abdominal discomfort [Unknown]
  - Flatulence [Unknown]
  - Anal incontinence [Unknown]
  - Pruritus [Unknown]
  - Flatulence [Unknown]
  - Abnormal faeces [Unknown]
  - Weight decreased [Unknown]
  - Insomnia [Unknown]

NARRATIVE: CASE EVENT DATE: 20211027
